FAERS Safety Report 19719314 (Version 2)
Quarter: 2021Q3

REPORT INFORMATION
  Report Type: Report from Study
  Country: None (occurrence: US)
  Receive Date: 20210819
  Receipt Date: 20210824
  Transmission Date: 20211014
  Serious: Yes (Hospitalization)
  Sender: FDA-Public Use
  Company Number: US-ABBVIE-21K-163-4040937-00

PATIENT
  Age: 61 Year
  Sex: Female

DRUGS (3)
  1. COVID?19 VACCINE [Concomitant]
     Indication: COVID-19 IMMUNISATION
     Route: 030
     Dates: start: 2021, end: 2021
  2. SKYRIZI [Suspect]
     Active Substance: RISANKIZUMAB-RZAA
     Indication: PSORIASIS
     Route: 058
     Dates: start: 202104
  3. COVID?19 VACCINE [Concomitant]
     Route: 030
     Dates: start: 2021, end: 2021

REACTIONS (7)
  - Palpitations [Recovered/Resolved]
  - Limb injury [Recovering/Resolving]
  - Wound infection [Recovered/Resolved]
  - Wound secretion [Unknown]
  - Scratch [Unknown]
  - Lymphoedema [Not Recovered/Not Resolved]
  - Dermatitis [Recovering/Resolving]

NARRATIVE: CASE EVENT DATE: 2021
